FAERS Safety Report 8126458-2 (Version None)
Quarter: 2012Q1

REPORT INFORMATION
  Report Type: 
  Country: None (occurrence: None)
  Receive Date: 20120209
  Receipt Date: 20120127
  Transmission Date: 20120608
  Serious: Yes (Hospitalization)
  Sender: FDA-Public Use
  Company Number: DE-GILEAD-2011-0035497

PATIENT
  Sex: Male

DRUGS (4)
  1. EMTRICITABINE/TENOFOVIR DISOPROXIL FUMARATE [Suspect]
     Indication: HIV INFECTION
     Dosage: 1 UNK, UNK
     Route: 048
     Dates: start: 20080521
  2. COTRIM [Concomitant]
     Indication: TOXOPLASMOSIS PROPHYLAXIS
  3. NEVIRAPINE [Suspect]
     Indication: HIV INFECTION
     Dosage: 200 MG, BID
     Route: 048
     Dates: start: 20080521
  4. COTRIM [Concomitant]
     Indication: ANTIFUNGAL PROPHYLAXIS
     Dosage: 480 MG, 3 TIMES PER WEEK
     Route: 048
     Dates: start: 20080806

REACTIONS (5)
  - POLYSEROSITIS [None]
  - EPSTEIN-BARR VIRUS INFECTION [None]
  - IMMUNE RECONSTITUTION SYNDROME [None]
  - DUODENITIS [None]
  - GASTRITIS [None]
